FAERS Safety Report 6874346-1 (Version None)
Quarter: 2010Q3

REPORT INFORMATION
  Report Type: 
  Country: None (occurrence: None)
  Receive Date: 20100723
  Receipt Date: 20090622
  Transmission Date: 20110219
  Serious: No
  Sender: FDA-Public Use
  Company Number: US-PFIZER INC-2009209408

PATIENT
  Sex: Male
  Weight: 80.726 kg

DRUGS (2)
  1. CHANTIX [Suspect]
     Indication: SMOKING CESSATION THERAPY
     Dates: start: 20090324, end: 20090301
  2. NEXIUM [Concomitant]
     Dosage: UNK

REACTIONS (9)
  - ANGER [None]
  - CONFUSIONAL STATE [None]
  - DECREASED ACTIVITY [None]
  - DEPRESSION [None]
  - FEELING ABNORMAL [None]
  - HYPERSOMNIA [None]
  - MALAISE [None]
  - MEMORY IMPAIRMENT [None]
  - TOBACCO USER [None]
